FAERS Safety Report 8326322-X (Version None)
Quarter: 2012Q2

REPORT INFORMATION
  Report Type: 
  Country: None (occurrence: None)
  Receive Date: 20120501
  Receipt Date: 20120419
  Transmission Date: 20120825
  Serious: Yes (Other)
  Sender: FDA-Public Use
  Company Number: US-ELI_LILLY_AND_COMPANY-US201204007238

PATIENT
  Sex: Male

DRUGS (7)
  1. PRASUGREL HYDROCHLORIDE [Suspect]
     Dosage: 10 MG, QD
     Dates: start: 20120217
  2. ANTIHYPERTENSIVES [Concomitant]
  3. PERCOCET [Concomitant]
  4. SYNTHROID [Concomitant]
  5. PRASUGREL HYDROCHLORIDE [Suspect]
     Indication: STENT PLACEMENT
     Dosage: 10 MG, QD
     Dates: start: 20101201, end: 20111201
  6. PROZAC [Concomitant]
  7. XANAX [Concomitant]

REACTIONS (9)
  - AORTIC ANEURYSM [None]
  - CORONARY ARTERY OCCLUSION [None]
  - HYPOVITAMINOSIS [None]
  - CONTUSION [None]
  - CONDITION AGGRAVATED [None]
  - ARTHRALGIA [None]
  - VITAMIN D DECREASED [None]
  - VITAMIN B COMPLEX DEFICIENCY [None]
  - INCREASED TENDENCY TO BRUISE [None]
